FAERS Safety Report 9307816 (Version 1)
Quarter: 2013Q2

REPORT INFORMATION
  Report Type: Spontaneous
  Country: US (occurrence: US)
  Receive Date: 20130524
  Receipt Date: 20130524
  Transmission Date: 20140414
  Serious: Yes (Other)
  Sender: FDA-Public Use
  Company Number: US-TEVA-406969USA

PATIENT
  Age: 53 Year
  Sex: Female

DRUGS (5)
  1. ANASTROZOLE [Suspect]
     Indication: BREAST CANCER STAGE I
     Route: 065
  2. ASPIRIN [Concomitant]
     Dosage: 81 MG/DAY
     Route: 065
  3. VITAMIN D [Concomitant]
     Dosage: 3000IU DAILY
     Route: 065
  4. CALCIUM CITRATE [Concomitant]
     Dosage: 600MG DAILY
     Route: 065
  5. NITROFURANTOIN [Concomitant]
     Dosage: POST-COITAL, AS NEEDED
     Route: 065

REACTIONS (1)
  - Lichen sclerosus [Not Recovered/Not Resolved]
